FAERS Safety Report 8695226 (Version 3)
Quarter: 2012Q4

REPORT INFORMATION
  Report Type: Spontaneous
  Country: JP (occurrence: None)
  Receive Date: 20120713
  Receipt Date: 20120920
  Transmission Date: 20130627
  Serious: Yes (Hospitalization)
  Sender: FDA-Public Use
  Company Number: TCI2012A03497

PATIENT
  Age: 81 Year
  Sex: Female

DRUGS (12)
  1. TAKEPRON OD (LANSOPRAZOLE) [Suspect]
     Indication: REFLUX ESOPHAGITIS
     Route: 048
     Dates: start: 20120123, end: 20120220
  2. TAKEPRON OD (LANSOPRAZOLE) [Suspect]
     Indication: REFLUX ESOPHAGITIS
     Route: 048
     Dates: start: 20120221, end: 20120530
  3. SEVEN E.P (PANCREATIN, CELLULASE, MOLSIN, NEWLASE, DIASTASE, PRONASE) [Concomitant]
  4. SIGMART (NICORANDIL) [Concomitant]
  5. GASMOTIN (MOSAPRIDE CITRATE) [Concomitant]
  6. RIZE (CLOTIAZEPAM) [Concomitant]
  7. MAGNESIUM OXIDE [Concomitant]
  8. AMLODIN OD (AMLODIPINE BESILATE) [Concomitant]
  9. HALFDIGOXIN (DIGOXIN) [Concomitant]
  10. DIART (AZOSEMIDE) [Concomitant]
  11. BAYASPIRIN (ACETYLSALICYLIC ACID) [Concomitant]
  12. MICARDIS (TELMISARTAN) [Concomitant]

REACTIONS (6)
  - Intestinal perforation [None]
  - Colitis microscopic [None]
  - Abdominal pain [None]
  - Diarrhoea [None]
  - Decreased appetite [None]
  - Ileus [None]
